FAERS Safety Report 5901899-X (Version None)
Quarter: 2008Q3

REPORT INFORMATION
  Report Type: 
  Country: None (occurrence: None)
  Receive Date: 20080925
  Receipt Date: 20080911
  Transmission Date: 20090109
  Serious: Yes (Hospitalization)
  Sender: FDA-Public Use
  Company Number: ENTC2008-0284

PATIENT
  Age: 67 Year
  Sex: Male
  Weight: 72.56 kg

DRUGS (2)
  1. STALEVO 100 [Suspect]
     Indication: PARKINSON'S DISEASE
     Dosage: 150MG, QID,
     Dates: start: 20040101, end: 20080801
  2. ARTANE [Suspect]
     Indication: PARKINSON'S DISEASE

REACTIONS (6)
  - CONDITION AGGRAVATED [None]
  - DYSPHAGIA [None]
  - FALL [None]
  - HIP FRACTURE [None]
  - PARKINSON'S DISEASE [None]
  - PNEUMONIA [None]
